FAERS Safety Report 17900958 (Version 1)
Quarter: 2020Q2

REPORT INFORMATION
  Report Type: Spontaneous
  Country: US (occurrence: US)
  Receive Date: 20200616
  Receipt Date: 20200616
  Transmission Date: 20200714
  Serious: No
  Sender: FDA-Public Use
  Company Number: US-SA-2020SA154579

PATIENT

DRUGS (1)
  1. PRALUENT [Suspect]
     Active Substance: ALIROCUMAB
     Dosage: 75 MG

REACTIONS (5)
  - Feeling abnormal [Unknown]
  - Breast operation [Unknown]
  - Product dose omission [Unknown]
  - Cholecystectomy [Unknown]
  - Hepatic enzyme increased [Unknown]
